FAERS Safety Report 25196059 (Version 1)
Quarter: 2025Q2

REPORT INFORMATION
  Report Type: Spontaneous
  Country: FR (occurrence: FR)
  Receive Date: 20250415
  Receipt Date: 20250415
  Transmission Date: 20250717
  Serious: Yes (Other)
  Sender: SANDOZ
  Company Number: FR-SANDOZ-SDZ2025FR022350

PATIENT
  Age: 44 Year
  Sex: Male

DRUGS (1)
  1. HYRIMOZ [Suspect]
     Active Substance: ADALIMUMAB-ADAZ
     Indication: Arthritis
     Dosage: ONE INJECTION, QW,40 MG SOLUTION FOR INJECTION IN  PRE-FILLED PEN
     Route: 065
     Dates: start: 2025

REACTIONS (3)
  - Arthritis [Unknown]
  - Product substitution issue [Unknown]
  - Refusal of treatment by patient [Unknown]

NARRATIVE: CASE EVENT DATE: 20250101
